FAERS Safety Report 6734157-4 (Version None)
Quarter: 2010Q2

REPORT INFORMATION
  Report Type: 
  Country: None (occurrence: None)
  Receive Date: 20100520
  Receipt Date: 20100510
  Transmission Date: 20101027
  Serious: Yes (Other)
  Sender: FDA-Public Use
  Company Number: GXKR2010TR05237

PATIENT
  Age: 61 Year
  Sex: Male

DRUGS (1)
  1. AZITHROMYCIN (NGX) [Suspect]
     Indication: UPPER RESPIRATORY TRACT INFECTION
     Dosage: 500 MG/DAY
     Route: 065

REACTIONS (4)
  - CHEST PAIN [None]
  - DYSPEPSIA [None]
  - ODYNOPHAGIA [None]
  - OESOPHAGEAL ULCER [None]
